FAERS Safety Report 20876010 (Version 1)
Quarter: 2022Q2

REPORT INFORMATION
  Report Type: Spontaneous
  Country: CN (occurrence: None)
  Receive Date: 20220526
  Receipt Date: 20220526
  Transmission Date: 20220720
  Serious: Yes (Hospitalization)
  Sender: FDA-Public Use
  Company Number: CN-ROCHE-3104742

PATIENT
  Age: 60 Year
  Sex: Male
  Weight: 74 kg

DRUGS (10)
  1. AVASTIN [Suspect]
     Active Substance: BEVACIZUMAB
     Indication: Rectal cancer
     Route: 041
     Dates: start: 20210519, end: 20210519
  2. AVASTIN [Suspect]
     Active Substance: BEVACIZUMAB
     Indication: Metastasis
  3. ZOLEDRONIC ACID [Suspect]
     Active Substance: ZOLEDRONIC ACID
     Indication: Rectal cancer
     Route: 041
     Dates: start: 20210518, end: 20210518
  4. ZOLEDRONIC ACID [Suspect]
     Active Substance: ZOLEDRONIC ACID
     Indication: Metastasis
  5. OXYCODONE HYDROCHLORIDE [Suspect]
     Active Substance: OXYCODONE HYDROCHLORIDE
     Indication: Analgesic therapy
     Route: 048
     Dates: start: 20210519, end: 20210524
  6. MEDROXYPROGESTERONE ACETATE [Suspect]
     Active Substance: MEDROXYPROGESTERONE ACETATE
     Indication: Rectal cancer
     Route: 048
     Dates: start: 20210522, end: 20210524
  7. MEDROXYPROGESTERONE ACETATE [Suspect]
     Active Substance: MEDROXYPROGESTERONE ACETATE
     Indication: Metastasis
  8. COSMETICS [Suspect]
     Active Substance: COSMETICS
     Indication: Granulocytopenia
     Route: 048
     Dates: start: 20210514, end: 20210524
  9. TISLELIZUMAB [Concomitant]
     Active Substance: TISLELIZUMAB
     Indication: Rectal cancer
     Route: 041
     Dates: start: 20210519, end: 20210519
  10. TISLELIZUMAB [Concomitant]
     Active Substance: TISLELIZUMAB
     Indication: Metastasis

REACTIONS (1)
  - Myelosuppression [Recovering/Resolving]

NARRATIVE: CASE EVENT DATE: 20210612
